FAERS Safety Report 5009298-2 (Version None)
Quarter: 2006Q2

REPORT INFORMATION
  Report Type: 
  Country: None (occurrence: None)
  Receive Date: 20060524
  Receipt Date: 20060519
  Transmission Date: 20061013
  Serious: Yes (Other)
  Sender: FDA-Public Use
  Company Number: PHEH2006US06582

PATIENT
  Age: 81 Year
  Sex: Male

DRUGS (1)
  1. LAMISIL [Suspect]
     Indication: NAIL TINEA
     Dosage: 250 MG, QD
     Route: 048
     Dates: start: 20060201, end: 20060201

REACTIONS (9)
  - ASTHENIA [None]
  - DECREASED APPETITE [None]
  - DIFFICULTY IN WALKING [None]
  - ERYTHEMA [None]
  - EYE DISCHARGE [None]
  - EYE INFECTION [None]
  - PERIORBITAL OEDEMA [None]
  - SKIN EXFOLIATION [None]
  - WEIGHT DECREASED [None]
